FAERS Safety Report 6788083-5 (Version None)
Quarter: 2010Q2

REPORT INFORMATION
  Report Type: 
  Country: None (occurrence: None)
  Receive Date: 20100621
  Receipt Date: 20100608
  Transmission Date: 20101027
  Serious: Yes (Hospitalization)
  Sender: FDA-Public Use
  Company Number: 232400J09USA

PATIENT
  Age: 40 Year
  Sex: Female
  Weight: 105 kg

DRUGS (3)
  1. REBIF [Suspect]
     Indication: MULTIPLE SCLEROSIS
     Dosage: 3 IN 1 WK
     Dates: start: 20031027, end: 20090512
  2. CELLCEPT [Suspect]
     Indication: MULTIPLE SCLEROSIS
     Dosage: 1 IN 1 D, ORAL
     Route: 048
     Dates: end: 20090511
  3. PREDNISONE TAB [Concomitant]

REACTIONS (1)
  - WOUND INFECTION STAPHYLOCOCCAL [None]
